FAERS Safety Report 8319526-3 (Version None)
Quarter: 2012Q2

REPORT INFORMATION
  Report Type: 
  Country: None (occurrence: None)
  Receive Date: 20120427
  Receipt Date: 20120417
  Transmission Date: 20120825
  Serious: Yes (Other)
  Sender: FDA-Public Use
  Company Number: US-ELI_LILLY_AND_COMPANY-US201204007035

PATIENT
  Sex: Female

DRUGS (2)
  1. BEVACIZUMAB [Concomitant]
     Indication: BREAST CANCER METASTATIC
     Dosage: 10 MG/KG, ON DAY 1 OF 14 DAY CYCLE
  2. GEMCITABINE HYDROCHLORIDE [Suspect]
     Indication: BREAST CANCER METASTATIC
     Dosage: 2500 MG/M2, ON DAY 1 OF 14 DAY CYCLE

REACTIONS (1)
  - PULMONARY EMBOLISM [None]
